FAERS Safety Report 13981201 (Version 2)
Quarter: 2017Q3

REPORT INFORMATION
  Report Type: Spontaneous
  Country: US (occurrence: US)
  Receive Date: 20170918
  Receipt Date: 20170922
  Transmission Date: 20171128
  Serious: Yes (Hospitalization)
  Sender: FDA-Public Use
  Company Number: US-STRIDES ARCOLAB LIMITED-2017SP012754

PATIENT

DRUGS (2)
  1. VANCOMYCIN [Suspect]
     Active Substance: VANCOMYCIN
     Indication: OSTEOMYELITIS
     Dosage: 1 G, EVERY 12 HRS
     Route: 042
  2. CEFEPIME [Suspect]
     Active Substance: CEFEPIME HYDROCHLORIDE
     Indication: OSTEOMYELITIS
     Dosage: 6G CONTINUOUS IV INFUSION DAILY
     Route: 042

REACTIONS (7)
  - Decreased appetite [Unknown]
  - Fatigue [Unknown]
  - Lymphadenopathy [Unknown]
  - Drug reaction with eosinophilia and systemic symptoms [Unknown]
  - Rash morbilliform [Recovered/Resolved]
  - Tubulointerstitial nephritis [Recovered/Resolved]
  - Pyrexia [Unknown]
